FAERS Safety Report 25389612 (Version 1)
Quarter: 2025Q2

REPORT INFORMATION
  Report Type: Spontaneous
  Country: US (occurrence: US)
  Receive Date: 20250603
  Receipt Date: 20250603
  Transmission Date: 20250716
  Serious: Yes (Other)
  Sender: AUROBINDO
  Company Number: US-AUROBINDO-AUR-APL-2025-027692

PATIENT
  Age: 14 Year
  Sex: Male

DRUGS (4)
  1. ATENOLOL [Suspect]
     Active Substance: ATENOLOL
     Indication: Hypertrophic cardiomyopathy
     Dosage: 25 MILLIGRAM, TWO TIMES A DAY
     Route: 065
  2. NADOLOL [Suspect]
     Active Substance: NADOLOL
     Indication: Hypertrophic cardiomyopathy
     Route: 065
  3. MEXILETINE [Suspect]
     Active Substance: MEXILETINE
     Indication: Hypertrophic cardiomyopathy
     Dosage: 150 MILLIGRAM, TWO TIMES A DAY
     Route: 065
  4. AMIODARONE [Concomitant]
     Active Substance: AMIODARONE
     Indication: Product used for unknown indication
     Route: 065

REACTIONS (1)
  - Drug ineffective [Unknown]
